FAERS Safety Report 16109207 (Version 1)
Quarter: 2019Q1

REPORT INFORMATION
  Report Type: Spontaneous
  Country: GB (occurrence: GB)
  Receive Date: 20190323
  Receipt Date: 20190323
  Transmission Date: 20190418
  Serious: Yes (Hospitalization, Disabling, Other)
  Sender: FDA-Public Use
  Company Number: PHHY2018GB201669

PATIENT
  Age: 73 Year
  Sex: Female
  Weight: 101.1 kg

DRUGS (4)
  1. OMEPRAZOLE SANDOZ [Suspect]
     Active Substance: OMEPRAZOLE
     Indication: MYELITIS TRANSVERSE
     Dosage: 20 MG, QD
     Route: 048
     Dates: start: 20180105, end: 20180224
  2. PREDNISOLONE. [Concomitant]
     Active Substance: PREDNISOLONE
     Indication: PRODUCT USED FOR UNKNOWN INDICATION
     Dosage: UNK
     Route: 065
  3. GLICLAZIDE [Concomitant]
     Active Substance: GLICLAZIDE
     Indication: PRODUCT USED FOR UNKNOWN INDICATION
     Dosage: UNK
     Route: 065
  4. METFORMIN [Concomitant]
     Active Substance: METFORMIN HYDROCHLORIDE
     Indication: PRODUCT USED FOR UNKNOWN INDICATION
     Dosage: UNK
     Route: 065

REACTIONS (7)
  - Diarrhoea [Unknown]
  - Vomiting [Unknown]
  - Chills [Unknown]
  - Skin exfoliation [Unknown]
  - Rash vesicular [Unknown]
  - Disorientation [Unknown]
  - Pain [Unknown]

NARRATIVE: CASE EVENT DATE: 20180214
